FAERS Safety Report 10041892 (Version 2)
Quarter: 2014Q2

REPORT INFORMATION
  Report Type: Spontaneous
  Country: US (occurrence: US)
  Receive Date: 20140327
  Receipt Date: 20140610
  Transmission Date: 20141212
  Serious: No
  Sender: FDA-Public Use
  Company Number: US-009507513-1403USA004608

PATIENT
  Age: 53 Year
  Sex: Male
  Weight: 99.77 kg

DRUGS (2)
  1. CLARITIN-D-12 [Suspect]
     Indication: NASOPHARYNGITIS
     Dosage: 5 MG, ONCE
     Route: 048
     Dates: start: 20140126, end: 20140126
  2. SIMVASTATIN [Concomitant]
     Indication: PRODUCT USED FOR UNKNOWN INDICATION
     Dosage: UNK, UNKNOWN

REACTIONS (2)
  - Sinus headache [Recovered/Resolved]
  - Drug ineffective [Unknown]
